FAERS Safety Report 25093548 (Version 2)
Quarter: 2025Q3

REPORT INFORMATION
  Report Type: Report from Study
  Country: US (occurrence: US)
  Receive Date: 20250319
  Receipt Date: 20250901
  Transmission Date: 20251020
  Serious: No
  Sender: SUNOVION
  Company Number: US-SUMITOMO PHARMA SWITZERLAND GMBH-2025SPA002119

PATIENT
  Age: 72 Year
  Sex: Male

DRUGS (15)
  1. ORGOVYX [Suspect]
     Active Substance: RELUGOLIX
     Indication: Prostate cancer
     Dosage: 360 MG, SINGLE
     Route: 048
     Dates: start: 20240724, end: 20240724
  2. ORGOVYX [Suspect]
     Active Substance: RELUGOLIX
     Dosage: 120 MG, QD
     Route: 048
     Dates: start: 20240725
  3. AMICAR [Concomitant]
     Active Substance: AMINOCAPROIC ACID
  4. ASPIRIN [Concomitant]
     Active Substance: ASPIRIN
  5. CALCIUM\CHOLECALCIFEROL [Concomitant]
     Active Substance: CALCIUM\CHOLECALCIFEROL
  6. CAMCEVI [Concomitant]
     Active Substance: LEUPROLIDE MESYLATE
  7. FLONASE [Concomitant]
     Active Substance: FLUTICASONE PROPIONATE
  8. MAGNESIUM [Concomitant]
     Active Substance: MAGNESIUM
  9. METOPROLOL SUCCINATE [Concomitant]
     Active Substance: METOPROLOL SUCCINATE
  10. PANTOPRAZOLE [Concomitant]
     Active Substance: PANTOPRAZOLE
  11. Polymyxin b -trimethoprim ophtha. [Concomitant]
  12. ROSUVASTATIN [Concomitant]
     Active Substance: ROSUVASTATIN
  13. SILDENAFIL [Concomitant]
     Active Substance: SILDENAFIL
  14. Vitaline [Concomitant]
  15. COENZYME Q10 [Concomitant]
     Active Substance: DIETARY SUPPLEMENT\UBIDECARENONE

REACTIONS (3)
  - Diarrhoea [Unknown]
  - Depression [Unknown]
  - Bone pain [Unknown]
